FAERS Safety Report 6585255-X (Version None)
Quarter: 2010Q1

REPORT INFORMATION
  Report Type: 
  Country: None (occurrence: None)
  Receive Date: 20100217
  Receipt Date: 20100202
  Transmission Date: 20100710
  Serious: Yes (Other)
  Sender: FDA-Public Use
  Company Number: GB-GENENTECH-297337

PATIENT
  Sex: Male

DRUGS (6)
  1. LUCENTIS [Suspect]
     Indication: MACULAR DEGENERATION
     Dosage: 0.5 MG, UNK
     Route: 031
     Dates: start: 20090630
  2. LUCENTIS [Suspect]
     Route: 031
  3. LUCENTIS [Suspect]
     Route: 031
  4. LUCENTIS [Suspect]
     Route: 031
  5. LUCENTIS [Suspect]
     Route: 031
  6. LUCENTIS [Suspect]
     Dosage: UNK
     Route: 031
     Dates: start: 20091230

REACTIONS (3)
  - ENDOPHTHALMITIS [None]
  - EYE PAIN [None]
  - STAPHYLOCOCCAL INFECTION [None]
